FAERS Safety Report 4577826-7 (Version None)
Quarter: 2005Q1

REPORT INFORMATION
  Report Type: 
  Country: None (occurrence: None)
  Receive Date: 20050209
  Receipt Date: 20050126
  Transmission Date: 20050727
  Serious: Yes (Life-Threatening, Hospitalization)
  Sender: FDA-Public Use
  Company Number: F01200403946

PATIENT
  Age: 69 Year
  Sex: Male

DRUGS (19)
  1. OXALIPLATIN - SOLUTION - 150 MG / SOLUTION - 150 MG [Suspect]
     Indication: COLORECTAL CANCER METASTATIC
     Dosage: 150 MG Q2W / 150 MG Q2W
     Route: 042
     Dates: start: 20041116, end: 20041116
  2. OXALIPLATIN - SOLUTION - 150 MG / SOLUTION - 150 MG [Suspect]
     Indication: COLORECTAL CANCER METASTATIC
     Dosage: 150 MG Q2W / 150 MG Q2W
     Route: 042
     Dates: start: 20041129, end: 20041129
  3. FLUOROURACIL [Suspect]
     Dosage: 700 MG IV BOLUS AND 1025 MG IV CONTINUOUS INFUSION, Q2W / 700 MG IV BOLUS AND 1025 MG IV CONTINUOUS
     Route: 042
     Dates: start: 20041116, end: 20041117
  4. FLUOROURACIL [Suspect]
     Dosage: 700 MG IV BOLUS AND 1025 MG IV CONTINUOUS INFUSION, Q2W / 700 MG IV BOLUS AND 1025 MG IV CONTINUOUS
     Route: 042
     Dates: start: 20041129, end: 20041130
  5. LEUCOVORIN - SOLUTION - 350 MG / SOLUTION - 320 MG [Suspect]
     Dosage: 350 MG Q2W / 320 MG Q2W
     Route: 042
     Dates: start: 20041116, end: 20041117
  6. LEUCOVORIN - SOLUTION - 350 MG / SOLUTION - 320 MG [Suspect]
     Dosage: 350 MG Q2W / 320 MG Q2W
     Route: 042
     Dates: start: 20041129, end: 20041130
  7. BEVACIZUMAB OR PLACEBO - SOLUTION - 1 UNIT / SOLUTION - 1 UNIT [Suspect]
     Dosage: 1 UNIT Q2W / 1 UNIT Q2W
     Route: 042
     Dates: start: 20041116, end: 20041116
  8. BEVACIZUMAB OR PLACEBO - SOLUTION - 1 UNIT / SOLUTION - 1 UNIT [Suspect]
     Dosage: 1 UNIT Q2W / 1 UNIT Q2W
     Route: 042
     Dates: start: 20041129, end: 20041129
  9. NEURONTIN [Concomitant]
  10. NU-SEALS ASPIRIN (ACETYLSALICYLIC ACID) [Concomitant]
  11. RAMIPRIL [Concomitant]
  12. LIPOSTAT (PRAVASTATIN SODIUM) [Concomitant]
  13. ZIRTEK (CETIRIZINE HYDROCHLORIDE) [Concomitant]
  14. LANSOPRAZOLE [Concomitant]
  15. MAXOLON [Concomitant]
  16. OXYCONTIN [Concomitant]
  17. MOVICOL (ELECTROLYTES NOS/POLYETHYLENE GLYCOL) [Concomitant]
  18. CENTRAX (PRAZEPAM) [Concomitant]
  19. MYCOSTATIN [Concomitant]

REACTIONS (8)
  - ABDOMINAL DISCOMFORT [None]
  - CONFUSIONAL STATE [None]
  - DECREASED APPETITE [None]
  - DYSPNOEA [None]
  - FEBRILE NEUTROPENIA [None]
  - NEUTROPENIC SEPSIS [None]
  - PRODUCTIVE COUGH [None]
  - SUPRAVENTRICULAR TACHYCARDIA [None]
